FAERS Safety Report 7911253-7 (Version None)
Quarter: 2011Q4

REPORT INFORMATION
  Report Type: 
  Country: None (occurrence: None)
  Receive Date: 20111108
  Receipt Date: 20111028
  Transmission Date: 20120403
  Serious: Yes (Hospitalization)
  Sender: FDA-Public Use
  Company Number: US-1188713

PATIENT
  Sex: Male

DRUGS (3)
  1. ASPIRIN [Concomitant]
  2. SIMVASTATIN [Concomitant]
  3. DUREZOL [Suspect]
     Indication: OCULAR HYPERAEMIA
     Dosage: (2 GTTS/DAY OD OPHTHALMIC) 1 MONTH
     Route: 047

REACTIONS (2)
  - CEREBROVASCULAR ACCIDENT [None]
  - CONFUSIONAL STATE [None]
